FAERS Safety Report 7070213-1 (Version None)
Quarter: 2010Q4

REPORT INFORMATION
  Report Type: 
  Country: None (occurrence: None)
  Receive Date: 20101028
  Receipt Date: 20100928
  Transmission Date: 20110411
  Serious: No
  Sender: FDA-Public Use
  Company Number: US-WYE-H17794610

PATIENT
  Age: 70 Year
  Sex: Male
  Weight: 78.09 kg

DRUGS (2)
  1. ADVIL [Suspect]
     Indication: NECK PAIN
     Dosage: 1 LIQUI-GEL EVERY 6 TO 7 HOURS
     Route: 048
     Dates: start: 20100927, end: 20100928
  2. ADVIL [Suspect]
     Indication: EPICONDYLITIS

REACTIONS (1)
  - HAEMATOSPERMIA [None]
